FAERS Safety Report 8937356 (Version 1)
Quarter: 2012Q4

REPORT INFORMATION
  Report Type: Spontaneous
  Country: US (occurrence: None)
  Receive Date: 20121128
  Receipt Date: 20121128
  Transmission Date: 20130627
  Serious: Yes (Other)
  Sender: FDA-Public Use
  Company Number: None

PATIENT
  Age: 33 Year
  Sex: Female
  Weight: 74.84 kg

DRUGS (2)
  1. LYRICA [Suspect]
     Indication: CHRONIC PAIN
     Dates: start: 20121126, end: 20121126
  2. LYRICA [Suspect]
     Indication: HERNIATED DISC
     Dates: start: 20121126, end: 20121126

REACTIONS (5)
  - Hallucination, visual [None]
  - Fear [None]
  - Panic attack [None]
  - Sexual activity increased [None]
  - Mania [None]
